FAERS Safety Report 5586478-9 (Version None)
Quarter: 2008Q1

REPORT INFORMATION
  Report Type: 
  Country: None (occurrence: None)
  Receive Date: 20080110
  Receipt Date: 20080103
  Transmission Date: 20080703
  Serious: Yes (Hospitalization)
  Sender: FDA-Public Use
  Company Number: ES-TYCO HEALTHCARE/MALLINCKRODT-T200701591

PATIENT

DRUGS (2)
  1. OPTIRAY 300 [Suspect]
     Dosage: 100 ML, SINGLE
     Route: 042
     Dates: start: 20070328, end: 20070328
  2. GASTROGRAFIN                       /00025901/ [Concomitant]
     Dosage: UNK, UNK
     Dates: start: 20070328, end: 20070328

REACTIONS (3)
  - ANAPHYLACTIC REACTION [None]
  - DYSPNOEA [None]
  - HYPOTENSION [None]
